FAERS Safety Report 21037114 (Version 1)
Quarter: 2022Q3

REPORT INFORMATION
  Report Type: Spontaneous
  Country: US (occurrence: US)
  Receive Date: 20220703
  Receipt Date: 20220703
  Transmission Date: 20221027
  Serious: No
  Sender: FDA-Public Use
  Company Number: US-GLENMARK PHARMACEUTICALS-2022GMK072126

PATIENT

DRUGS (2)
  1. AZELAIC ACID [Suspect]
     Active Substance: AZELAIC ACID
     Indication: Pustule
     Dosage: UNK, OD
     Route: 061
  2. AZELAIC ACID [Suspect]
     Active Substance: AZELAIC ACID
     Indication: Rosacea

REACTIONS (1)
  - Product use issue [Unknown]
